FAERS Safety Report 13181910 (Version 2)
Quarter: 2017Q2

REPORT INFORMATION
  Report Type: Spontaneous
  Country: US (occurrence: US)
  Receive Date: 20170202
  Receipt Date: 20170502
  Transmission Date: 20170830
  Serious: No
  Sender: FDA-Public Use
  Company Number: US-IMPAX LABORATORIES, INC-2016-IPXL-02275

PATIENT
  Age: 69 Year
  Sex: Male

DRUGS (3)
  1. AZILECT [Concomitant]
     Active Substance: RASAGILINE MESYLATE
     Indication: TREMOR
     Dosage: 1 MG, QD; IN THE MORNING
     Route: 065
     Dates: start: 2014
  2. RYTARY [Suspect]
     Active Substance: CARBIDOPA\LEVODOPA
     Indication: PARKINSON^S DISEASE
     Dosage: 48.75/195 MG THREE CAPSULES THREE TIMES A DAY
     Route: 048
     Dates: start: 201611
  3. ENTACAPONE. [Concomitant]
     Active Substance: ENTACAPONE
     Indication: PARKINSON^S DISEASE
     Dosage: 200 MG, TID
     Route: 065
     Dates: start: 2014

REACTIONS (3)
  - Anaemia [Unknown]
  - Euphoric mood [Not Recovered/Not Resolved]
  - Constipation [Not Recovered/Not Resolved]
